FAERS Safety Report 8042737-1 (Version None)
Quarter: 2011Q4

REPORT INFORMATION
  Report Type: 
  Country: None (occurrence: None)
  Receive Date: 20111209
  Receipt Date: 20111003
  Transmission Date: 20120403
  Serious: No
  Sender: FDA-Public Use
  Company Number: TH-2011-00481

PATIENT
  Sex: Male

DRUGS (2)
  1. INTERFERON [Suspect]
  2. EGRIFTA [Suspect]
     Indication: PRODUCT USED FOR UNKNOWN INDICATION

REACTIONS (2)
  - FATIGUE [None]
  - NEUROPATHY PERIPHERAL [None]
